FAERS Safety Report 16449459 (Version 1)
Quarter: 2019Q2

REPORT INFORMATION
  Report Type: Spontaneous
  Country: BG (occurrence: BG)
  Receive Date: 20190619
  Receipt Date: 20190619
  Transmission Date: 20190711
  Serious: Yes (Death)
  Sender: FDA-Public Use
  Company Number: BG-ROCHE-2338671

PATIENT
  Age: 78 Year
  Sex: Male

DRUGS (11)
  1. NITRONAL [Concomitant]
     Active Substance: NITROGLYCERIN
     Route: 065
  2. FUROSEMIDE. [Concomitant]
     Active Substance: FUROSEMIDE
     Dosage: 1 AMPOULE
     Route: 065
  3. ACTILYSE [Suspect]
     Active Substance: ALTEPLASE
     Indication: CEREBROVASCULAR ACCIDENT
  4. ACTILYSE [Suspect]
     Active Substance: ALTEPLASE
     Indication: PROPHYLAXIS
     Dosage: 56.7+6.3 ML
     Route: 065
     Dates: start: 20180125
  5. DORMICUM [MIDAZOLAM] [Concomitant]
     Active Substance: MIDAZOLAM HYDROCHLORIDE
     Route: 065
  6. GLUCOSE [Concomitant]
     Active Substance: DEXTROSE
     Dosage: 5%X 500 ML
     Route: 065
  7. SOMAZINA [CITICOLINE] [Concomitant]
     Dosage: 1X AMPULE
     Route: 065
  8. VICETIN [Concomitant]
     Dosage: 1X AMPULE
     Route: 065
  9. SODIUM CHLORIDE. [Concomitant]
     Active Substance: SODIUM CHLORIDE
     Dosage: 0.9% X 500
     Route: 065
  10. CHLOPHAZOLIN [Concomitant]
     Active Substance: CLONIDINE HYDROCHLORIDE
     Dosage: 1X AMPULE
     Route: 065
  11. DIGOXIN. [Concomitant]
     Active Substance: DIGOXIN
     Dosage: 1/2 AMPOULE
     Route: 065

REACTIONS (4)
  - Coma [Fatal]
  - Haemorrhage [Fatal]
  - Acute respiratory failure [Fatal]
  - Cardiac failure [Fatal]

NARRATIVE: CASE EVENT DATE: 20180127
